FAERS Safety Report 6007467-6 (Version None)
Quarter: 2008Q4

REPORT INFORMATION
  Report Type: 
  Country: None (occurrence: None)
  Receive Date: 20081217
  Receipt Date: 20080425
  Transmission Date: 20090506
  Serious: No
  Sender: FDA-Public Use
  Company Number: US-ASTRAZENECA-2008UW08438

PATIENT
  Age: 63 Year
  Sex: Male

DRUGS (6)
  1. CRESTOR [Suspect]
     Indication: BLOOD CHOLESTEROL INCREASED
     Route: 048
     Dates: start: 20030101
  2. ANDRODERM [Suspect]
     Indication: BLOOD TESTOSTERONE DECREASED
     Dosage: 1 PATCH DAILY TRANSDERMAL
     Dates: start: 20080201, end: 20080410
  3. ANDRODERM [Suspect]
     Dosage: 1 PATCH DAILY TRANSDERMAL
     Dates: start: 20080414, end: 20080415
  4. NIASPAN [Suspect]
     Indication: BLOOD CHOLESTEROL INCREASED
     Route: 048
     Dates: start: 20080201, end: 20080409
  5. ASPIRIN [Suspect]
     Indication: ILL-DEFINED DISORDER
     Route: 048
     Dates: start: 20080201, end: 20080401
  6. PREVACID [Concomitant]

REACTIONS (5)
  - DYSPEPSIA [None]
  - EARLY SATIETY [None]
  - OEDEMA PERIPHERAL [None]
  - PARAESTHESIA [None]
  - THROAT IRRITATION [None]
